FAERS Safety Report 11739410 (Version 1)
Quarter: 2015Q4

REPORT INFORMATION
  Report Type: Spontaneous
  Country: US (occurrence: US)
  Receive Date: 20151110
  Receipt Date: 20151110
  Transmission Date: 20160304
  Serious: No
  Sender: FDA-Public Use
  Company Number: US-ELI_LILLY_AND_COMPANY-US201209000965

PATIENT
  Age: 46 Year
  Sex: Female

DRUGS (3)
  1. PLAQUENIL [Concomitant]
     Active Substance: HYDROXYCHLOROQUINE SULFATE
  2. FORTEO [Suspect]
     Active Substance: TERIPARATIDE
     Dosage: 20 UG, QD
     Route: 065
     Dates: end: 20120901
  3. FORTEO [Suspect]
     Active Substance: TERIPARATIDE
     Indication: OSTEOPOROSIS
     Dosage: 20 UG, QD
     Route: 065
     Dates: start: 20110401

REACTIONS (20)
  - Haemorrhage [Unknown]
  - Visual acuity reduced [Unknown]
  - Arthralgia [Unknown]
  - Sensation of foreign body [Unknown]
  - Bone density decreased [Unknown]
  - Hypoaesthesia [Unknown]
  - Paraesthesia [Unknown]
  - Pain [Unknown]
  - Shoulder deformity [Unknown]
  - Skin atrophy [Unknown]
  - Bone deformity [Unknown]
  - Musculoskeletal pain [Not Recovered/Not Resolved]
  - Functional gastrointestinal disorder [Unknown]
  - Contusion [Unknown]
  - Alopecia [Unknown]
  - Systemic lupus erythematosus [Unknown]
  - Bone disorder [Unknown]
  - Cartilage injury [Unknown]
  - Intentional product misuse [Unknown]
  - Back pain [Unknown]

NARRATIVE: CASE EVENT DATE: 201204
